FAERS Safety Report 24980699 (Version 4)
Quarter: 2025Q1

REPORT INFORMATION
  Report Type: Spontaneous
  Country: US (occurrence: US)
  Receive Date: 20250218
  Receipt Date: 20250321
  Transmission Date: 20250408
  Serious: No
  Sender: Haleon PLC
  Company Number: US-HALEON-2228601

PATIENT

DRUGS (1)
  1. ADVIL PM (DIPHENHYDRAMINE CITRATE\IBUPROFEN) [Suspect]
     Active Substance: DIPHENHYDRAMINE CITRATE\IBUPROFEN
     Indication: Product used for unknown indication

REACTIONS (4)
  - Headache [Unknown]
  - Poor quality product administered [Unknown]
  - Wrong technique in product usage process [Unknown]
  - Product contamination physical [Unknown]
